FAERS Safety Report 23935720 (Version 5)
Quarter: 2024Q3

REPORT INFORMATION
  Report Type: Report from Study
  Country: CH (occurrence: CH)
  Receive Date: 20240604
  Receipt Date: 20240822
  Transmission Date: 20241017
  Serious: Yes (Other)
  Sender: MIRUM PHARMACEUTICALS
  Company Number: CH-MIRUM PHARMACEUTICALS, INC.-CH-MIR-24-00133

PATIENT

DRUGS (3)
  1. MARALIXIBAT CHLORIDE [Suspect]
     Active Substance: MARALIXIBAT CHLORIDE
     Indication: Alagille syndrome
     Dosage: DOUBLE THE DOSE
     Route: 048
     Dates: start: 20230802, end: 20230919
  2. MARALIXIBAT CHLORIDE [Suspect]
     Active Substance: MARALIXIBAT CHLORIDE
     Dosage: 400 MICROGRAM/KILOGRAM, QD
     Route: 048
     Dates: start: 20221005, end: 20230801
  3. MARALIXIBAT CHLORIDE [Suspect]
     Active Substance: MARALIXIBAT CHLORIDE
     Dosage: 200 MICROGRAM/KILOGRAM, QD
     Route: 048
     Dates: start: 20220922

REACTIONS (3)
  - Cholestasis [Unknown]
  - Condition aggravated [Unknown]
  - Drug ineffective [Recovered/Resolved]

NARRATIVE: CASE EVENT DATE: 20230802
